FAERS Safety Report 21355470 (Version 1)
Quarter: 2022Q3

REPORT INFORMATION
  Report Type: Spontaneous
  Country: US (occurrence: None)
  Receive Date: 20220920
  Receipt Date: 20220920
  Transmission Date: 20221026
  Serious: Yes (Other)
  Sender: FDA-Public Use
  Company Number: None

PATIENT
  Age: 80 Year
  Sex: Male

DRUGS (1)
  1. IMLYGIC [Suspect]
     Active Substance: TALIMOGENE LAHERPAREPVEC
     Indication: Malignant melanoma
     Dosage: OTHER FREQUENCY : EVERY 14 DAYS;?
     Dates: start: 20220715

REACTIONS (2)
  - Hypoaesthesia [None]
  - Disease recurrence [None]

NARRATIVE: CASE EVENT DATE: 20220916
